FAERS Safety Report 10879274 (Version 1)
Quarter: 2015Q1

REPORT INFORMATION
  Report Type: Spontaneous
  Country: US (occurrence: None)
  Receive Date: 20150224
  Receipt Date: 20150224
  Transmission Date: 20150721
  Serious: Yes (Hospitalization)
  Sender: FDA-Public Use
  Company Number: None

PATIENT
  Age: 54 Year
  Sex: Female
  Weight: 73.84 kg

DRUGS (12)
  1. SIMVASTATIN. [Concomitant]
     Active Substance: SIMVASTATIN
  2. SOFOSBUVIR 400 GILEAD SCIENCES, INC. [Suspect]
     Active Substance: SOFOSBUVIR
     Indication: HEPATITIS C
     Route: 048
     Dates: start: 20140327, end: 20140618
  3. CALCIUM CARBONATE W/VITAMIN D NOS [Concomitant]
     Active Substance: CALCIUM CARBONATE\VITAMIN D
  4. FUROSEMIDE. [Concomitant]
     Active Substance: FUROSEMIDE
  5. NADOLOL. [Concomitant]
     Active Substance: NADOLOL
  6. LACTULOSE. [Concomitant]
     Active Substance: LACTULOSE
  7. MAGNESIUM OXIDE. [Concomitant]
     Active Substance: MAGNESIUM OXIDE
  8. ASPIRIN. [Concomitant]
     Active Substance: ASPIRIN
  9. INDERAL [Concomitant]
     Active Substance: PROPRANOLOL HYDROCHLORIDE
  10. SIMEPREVIR 150 MG [Suspect]
     Active Substance: SIMEPREVIR
     Indication: HEPATITIS C
     Route: 048
     Dates: start: 20140327, end: 20140618
  11. SPIRONOLACTONE. [Concomitant]
     Active Substance: SPIRONOLACTONE
  12. RIFAXIMIN [Concomitant]
     Active Substance: RIFAXIMIN

REACTIONS (4)
  - Atelectasis [None]
  - Pleural effusion [None]
  - Ascites [None]
  - Dyspnoea [None]

NARRATIVE: CASE EVENT DATE: 20140617
